FAERS Safety Report 8372710-5 (Version None)
Quarter: 2012Q2

REPORT INFORMATION
  Report Type: 
  Country: None (occurrence: None)
  Receive Date: 20120521
  Receipt Date: 20120514
  Transmission Date: 20120825
  Serious: Yes (Other)
  Sender: FDA-Public Use
  Company Number: US-B.I. PHARMACEUTICALS,INC./RIDGEFIELD-2011-BP-13101BP

PATIENT
  Sex: Male

DRUGS (9)
  1. TYLENOL [Concomitant]
     Route: 048
  2. CARDIZEM [Suspect]
  3. LOSARTAN POTASSIUM [Concomitant]
     Indication: HYPERTENSION
  4. LOSARTAN POTASSIUM [Concomitant]
     Indication: ATRIAL FIBRILLATION
     Dosage: 25 MG
     Route: 048
     Dates: start: 20110301
  5. FISH OIL [Concomitant]
     Dosage: 1000 MG
  6. PRADAXA [Suspect]
     Indication: ATRIAL FIBRILLATION
     Dosage: 300 MG
     Route: 048
     Dates: start: 20110318, end: 20110510
  7. METOPROLOL [Suspect]
  8. ASPIRIN [Concomitant]
     Indication: ATRIAL FIBRILLATION
     Dosage: 325 MG
     Route: 048
     Dates: start: 20110511
  9. PRADAXA [Suspect]
     Dosage: 300 MG
     Route: 048
     Dates: start: 20111006

REACTIONS (5)
  - DIARRHOEA [None]
  - DEPRESSED MOOD [None]
  - FEELING ABNORMAL [None]
  - BASAL CELL CARCINOMA [None]
  - HEADACHE [None]
